FAERS Safety Report 8115775-8 (Version None)
Quarter: 2012Q1

REPORT INFORMATION
  Report Type: 
  Country: None (occurrence: None)
  Receive Date: 20120201
  Receipt Date: 20120127
  Transmission Date: 20120608
  Serious: Yes (Life-Threatening)
  Sender: FDA-Public Use
  Company Number: 2011SP023237

PATIENT
  Age: 29 Year
  Sex: Female

DRUGS (3)
  1. CHORIONIC GONADOTROPIN [Suspect]
     Dates: start: 20110305, end: 20110305
  2. GANIRELIX ACETATE INJECTION [Suspect]
     Indication: PRODUCT USED FOR UNKNOWN INDICATION
     Dosage: 0.25 MG;QD;SC
     Route: 058
     Dates: start: 20110228, end: 20110305
  3. PUREGON (FOLLITROPIN BETA /01348901/) [Suspect]
     Indication: PRODUCT USED FOR UNKNOWN INDICATION
     Dosage: 150 IU;QD;SC
     Route: 058
     Dates: start: 20110223, end: 20110305

REACTIONS (4)
  - DYSPNOEA [None]
  - HYPOXIA [None]
  - PLEURAL EFFUSION [None]
  - OVARIAN HYPERSTIMULATION SYNDROME [None]
